FAERS Safety Report 5286922-0 (Version None)
Quarter: 2007Q1

REPORT INFORMATION
  Report Type: 
  Country: None (occurrence: None)
  Receive Date: 20070329
  Receipt Date: 20070323
  Transmission Date: 20070707
  Serious: Yes (Hospitalization)
  Sender: FDA-Public Use
  Company Number: 238780

PATIENT
  Age: 64 Year
  Sex: Male

DRUGS (9)
  1. RITUXAN [Suspect]
     Indication: NON-HODGKIN'S LYMPHOMA
     Dosage: 570 MG, SINGLE; INTRAVENOUS, 560 MG, SINGLE; INTRAVENOUS
     Route: 042
     Dates: start: 20061122
  2. RITUXAN [Suspect]
     Indication: NON-HODGKIN'S LYMPHOMA
     Dosage: 570 MG, SINGLE; INTRAVENOUS, 560 MG, SINGLE; INTRAVENOUS
     Route: 042
     Dates: start: 20070115
  3. DOXORUBICIN HCL [Concomitant]
  4. CYCLOPHOSPHAMIDE [Concomitant]
  5. ONCOVIN [Concomitant]
  6. PREDNISOLONE [Concomitant]
  7. PARAPLATIN [Concomitant]
  8. ETOPOSIDE [Concomitant]
  9. IFOSFAMIDE [Concomitant]

REACTIONS (1)
  - PERITONITIS [None]
